FAERS Safety Report 10541188 (Version 2)
Quarter: 2014Q4

REPORT INFORMATION
  Report Type: Spontaneous
  Country: DE (occurrence: DE)
  Receive Date: 20141024
  Receipt Date: 20141229
  Transmission Date: 20150529
  Serious: Yes (Death, Other)
  Sender: FDA-Public Use
  Company Number: DE-GILEAD-2014-0119176

PATIENT
  Age: 83 Year
  Sex: Male
  Weight: 73.8 kg

DRUGS (4)
  1. SYNEUDON [Suspect]
     Active Substance: AMITRIPTYLINE HYDROCHLORIDE
     Indication: DEPRESSION
     Dosage: 50 MG, QD
     Route: 048
     Dates: start: 2006, end: 201409
  2. MICARDIS [Concomitant]
     Active Substance: TELMISARTAN
     Indication: HYPERTENSION
     Dosage: 80 MG, UNK
     Route: 048
     Dates: start: 2009, end: 201409
  3. ASPIRIN. [Concomitant]
     Active Substance: ASPIRIN
     Indication: CORONARY ARTERY DISEASE
     Dosage: 100 MG, UNK
     Route: 048
     Dates: start: 2006, end: 201409
  4. RANOLAZINE [Suspect]
     Active Substance: RANOLAZINE
     Indication: DYSPNOEA
     Dosage: 375 MG, BID
     Route: 048
     Dates: start: 2014, end: 201409

REACTIONS (3)
  - Off label use [Fatal]
  - Acute hepatic failure [Fatal]
  - Hepatorenal failure [Fatal]

NARRATIVE: CASE EVENT DATE: 2014
